FAERS Safety Report 18542304 (Version 1)
Quarter: 2020Q4

REPORT INFORMATION
  Report Type: Spontaneous
  Country: US (occurrence: US)
  Receive Date: 20201125
  Receipt Date: 20201125
  Transmission Date: 20210114
  Serious: Yes (Hospitalization, Other)
  Sender: FDA-Public Use
  Company Number: US-LUPIN PHARMACEUTICALS INC.-2020-09268

PATIENT
  Age: 23 Year
  Sex: Male

DRUGS (4)
  1. ZIPRASIDONE HYDROCHLORIDE. [Suspect]
     Active Substance: ZIPRASIDONE HYDROCHLORIDE
     Indication: SCHIZOPHRENIA
     Dosage: 01 DOSAGE FORM, BID (PILL)
     Route: 065
  2. GREEN TEA EXTRACT (DIETARY SUPPLEMENT) [Interacting]
     Active Substance: DIETARY SUPPLEMENT
     Indication: WEIGHT LOSS DIET
     Dosage: 6 DOSAGE FORM (RECOMMENDED DAILY DOSE WAS 4 PILLS)
     Route: 065
  3. ZIPRASIDONE HYDROCHLORIDE. [Interacting]
     Active Substance: ZIPRASIDONE HYDROCHLORIDE
     Dosage: 20 DOSAGE FORM, SINGLE (PILL)
     Route: 065
  4. ZIPRASIDONE HYDROCHLORIDE. [Interacting]
     Active Substance: ZIPRASIDONE HYDROCHLORIDE
     Dosage: 40 MILLIGRAM, BID
     Route: 065

REACTIONS (7)
  - Psychotic disorder [Recovered/Resolved]
  - Condition aggravated [Recovered/Resolved]
  - Paranoia [Recovered/Resolved]
  - Food interaction [Recovered/Resolved]
  - Hallucination, auditory [Recovered/Resolved]
  - Delusion [Recovered/Resolved]
  - Overdose [Recovered/Resolved]
